FAERS Safety Report 5505753-7 (Version None)
Quarter: 2007Q4

REPORT INFORMATION
  Report Type: 
  Country: None (occurrence: None)
  Receive Date: 20071102
  Receipt Date: 20071023
  Transmission Date: 20080405
  Serious: Yes (Hospitalization)
  Sender: FDA-Public Use
  Company Number: PFIZER INC-2007088227

PATIENT
  Age: 60 Year
  Sex: Male
  Weight: 75.6 kg

DRUGS (3)
  1. SUTENT [Suspect]
     Indication: NEOPLASM
     Route: 048
  2. BEVACIZUMAB [Suspect]
     Indication: NEOPLASM
     Route: 042
  3. IBUPROFEN [Concomitant]

REACTIONS (2)
  - HAEMORRHAGE [None]
  - INFECTION [None]
